FAERS Safety Report 4488893-3 (Version None)
Quarter: 2004Q4

REPORT INFORMATION
  Report Type: 
  Country: None (occurrence: None)
  Receive Date: 20041029
  Receipt Date: 20041020
  Transmission Date: 20050328
  Serious: Yes (Hospitalization, Disabling)
  Sender: FDA-Public Use
  Company Number: US-MERCK-0410USA03152

PATIENT
  Age: 65 Year
  Sex: Female

DRUGS (5)
  1. VIOXX [Suspect]
     Indication: SCIATICA
     Route: 048
     Dates: start: 20040723, end: 20040801
  2. LEVOXYL [Concomitant]
     Route: 065
  3. AMARYL [Concomitant]
     Route: 065
  4. HUMALOG MIX 75/25 [Concomitant]
     Route: 065
  5. LIPITOR [Concomitant]
     Route: 065

REACTIONS (1)
  - UTERINE CANCER [None]
